FAERS Safety Report 23353908 (Version 2)
Quarter: 2024Q1

REPORT INFORMATION
  Report Type: Spontaneous
  Country: US (occurrence: None)
  Receive Date: 20240101
  Receipt Date: 20240118
  Transmission Date: 20240410
  Serious: No
  Sender: FDA-Public Use
  Company Number: 2023A283860

PATIENT
  Sex: Female

DRUGS (1)
  1. TEZSPIRE [Suspect]
     Active Substance: TEZEPELUMAB-EKKO
     Indication: Single umbilical artery
     Dosage: 3, EVERY FOUR WEEKS
     Route: 058
     Dates: start: 202310, end: 202310

REACTIONS (2)
  - Pain in extremity [Unknown]
  - Peripheral swelling [Unknown]
